FAERS Safety Report 5934468-6 (Version None)
Quarter: 2008Q4

REPORT INFORMATION
  Report Type: 
  Country: None (occurrence: None)
  Receive Date: 20081027
  Receipt Date: 20081013
  Transmission Date: 20090506
  Serious: Yes (Other)
  Sender: FDA-Public Use
  Company Number: 8037386

PATIENT
  Sex: Female
  Weight: 45 kg

DRUGS (7)
  1. KEPPRA [Suspect]
     Indication: PROPHYLAXIS
     Dosage: 500 MG 2/D PO
     Route: 048
     Dates: start: 20080601, end: 20080601
  2. KEPPRA [Suspect]
     Indication: PROPHYLAXIS
     Dosage: 750 MG 2/D PO
     Route: 048
     Dates: start: 20080601
  3. NEXIUM [Concomitant]
  4. ZANTAC [Concomitant]
  5. ASTELIN [Concomitant]
  6. NASONEX [Concomitant]
  7. TYLENOL [Concomitant]

REACTIONS (17)
  - AMNESIA [None]
  - CONVULSION [None]
  - EAR INFECTION [None]
  - ENCEPHALITIS [None]
  - FATIGUE [None]
  - FEELING ABNORMAL [None]
  - INAPPROPRIATE SCHEDULE OF DRUG ADMINISTRATION [None]
  - INSOMNIA [None]
  - LYMPHADENOPATHY [None]
  - MALAISE [None]
  - OSTEOMYELITIS [None]
  - POSTOPERATIVE WOUND COMPLICATION [None]
  - RED BLOOD CELL COUNT DECREASED [None]
  - STAPHYLOCOCCAL INFECTION [None]
  - SWELLING [None]
  - TREATMENT NONCOMPLIANCE [None]
  - WHITE BLOOD CELL COUNT DECREASED [None]
